FAERS Safety Report 6585279-2 (Version None)
Quarter: 2010Q1

REPORT INFORMATION
  Report Type: 
  Country: None (occurrence: None)
  Receive Date: 20100213
  Receipt Date: 20100213
  Transmission Date: 20100710
  Serious: Yes (Hospitalization)
  Sender: FDA-Public Use
  Company Number: None

PATIENT
  Age: 75 Year
  Sex: Female
  Weight: 68.9467 kg

DRUGS (2)
  1. GENTAMICIN [Suspect]
     Indication: LUNG INFECTION
     Dosage: 80MG Q8 HOURS IV
     Route: 042
     Dates: start: 20100205, end: 20100209
  2. GENTAMICIN [Suspect]
     Indication: URINARY TRACT INFECTION
     Dosage: 80MG Q8 HOURS IV
     Route: 042
     Dates: start: 20100205, end: 20100209

REACTIONS (3)
  - DRUG LEVEL ABOVE THERAPEUTIC [None]
  - INCORRECT DOSE ADMINISTERED [None]
  - MEDICATION ERROR [None]
